FAERS Safety Report 11513588 (Version 1)
Quarter: 2015Q3

REPORT INFORMATION
  Report Type: Spontaneous
  Country: US (occurrence: US)
  Receive Date: 20150903
  Receipt Date: 20150903
  Transmission Date: 20151125
  Serious: No
  Sender: FDA-Public Use
  Company Number: US-ELI_LILLY_AND_COMPANY-US201210009149

PATIENT
  Age: 48 Year

DRUGS (1)
  1. CYMBALTA [Suspect]
     Active Substance: DULOXETINE HYDROCHLORIDE
     Indication: ARTHRALGIA
     Dosage: 30 MG, QD
     Dates: start: 20121018

REACTIONS (4)
  - Paraesthesia [Unknown]
  - Insomnia [Unknown]
  - Agitation [Unknown]
  - Incorrect dose administered [Unknown]
